FAERS Safety Report 14114061 (Version 2)
Quarter: 2017Q4

REPORT INFORMATION
  Report Type: Spontaneous
  Country: ZA (occurrence: ZA)
  Receive Date: 20171023
  Receipt Date: 20171023
  Transmission Date: 20180321
  Serious: Yes (Hospitalization)
  Sender: FDA-Public Use
  Company Number: ZA-CIPLA LTD.-2016ZA07619

PATIENT

DRUGS (1)
  1. SERDEP (SERTRALINE HYDROCHLORIDE) [Suspect]
     Active Substance: SERTRALINE HYDROCHLORIDE
     Dosage: 200 MG, BID
     Route: 065

REACTIONS (3)
  - Incorrect dose administered [None]
  - Aphasia [Unknown]
  - Loss of consciousness [Unknown]
